FAERS Safety Report 4397770-8 (Version None)
Quarter: 2004Q3

REPORT INFORMATION
  Report Type: 
  Country: None (occurrence: None)
  Receive Date: 20040713
  Receipt Date: 20040706
  Transmission Date: 20050211
  Serious: Yes (Other)
  Sender: FDA-Public Use
  Company Number: 2004222241US

PATIENT
  Sex: Female

DRUGS (4)
  1. PROVERA (MEDROXYPROGEST [Suspect]
     Indication: MENOPAUSAL SYMPTOMS
     Dates: start: 19941001, end: 19951101
  2. PREMARIN [Suspect]
     Indication: MENOPAUSAL SYMPTOMS
     Dates: start: 19941001, end: 19971101
  3. CYCRIN [Suspect]
     Indication: MENOPAUSAL SYMPTOMS
     Dates: start: 19951101, end: 19971101
  4. PREMPRO [Suspect]
     Indication: MENOPAUSAL SYMPTOMS
     Dates: start: 19971101, end: 20010501

REACTIONS (1)
  - PULMONARY EMBOLISM [None]
